FAERS Safety Report 16381806 (Version 2)
Quarter: 2019Q3

REPORT INFORMATION
  Report Type: Spontaneous
  Country: JP (occurrence: JP)
  Receive Date: 20190603
  Receipt Date: 20190902
  Transmission Date: 20191004
  Serious: Yes (Other)
  Sender: FDA-Public Use
  Company Number: JP-009507513-1905JPN003646J

PATIENT
  Age: 78 Year
  Sex: Male

DRUGS (4)
  1. GRAZYNA TABLETS 50MG [Suspect]
     Active Substance: GRAZOPREVIR
     Indication: HEPATITIS C
     Dosage: 100 MILLIGRAM, QD
     Route: 048
  2. ERELSA TABLETS 50MG [Suspect]
     Active Substance: ELBASVIR
     Indication: HEPATITIS C
     Dosage: 50 MILLIGRAM, QD
     Route: 048
  3. GRAZYNA TABLETS 50MG [Suspect]
     Active Substance: GRAZOPREVIR
     Dosage: UNK
     Route: 048
  4. ERELSA TABLETS 50MG [Suspect]
     Active Substance: ELBASVIR
     Dosage: UNK
     Route: 048

REACTIONS (2)
  - Hepatic function abnormal [Unknown]
  - Intentional underdose [Unknown]
